FAERS Safety Report 8798537 (Version 1)
Quarter: 2012Q4

REPORT INFORMATION
  Report Type: Spontaneous
  Country: US (occurrence: None)
  Receive Date: 20120917
  Receipt Date: 20120917
  Transmission Date: 20130627
  Serious: Yes (Hospitalization)
  Sender: FDA-Public Use
  Company Number: None

PATIENT
  Age: 53 Year
  Sex: Male
  Weight: 131.54 kg

DRUGS (1)
  1. CYCLOSET [Suspect]
     Indication: DIABETES
     Route: 048
     Dates: start: 20120825, end: 20120927

REACTIONS (7)
  - Incoherent [None]
  - Dizziness [None]
  - Hypotension [None]
  - Headache [None]
  - Muscle disorder [None]
  - Tremor [None]
  - Cognitive disorder [None]
